FAERS Safety Report 7962532-9 (Version None)
Quarter: 2011Q4

REPORT INFORMATION
  Report Type: 
  Country: None (occurrence: None)
  Receive Date: 20111207
  Receipt Date: 20111102
  Transmission Date: 20120403
  Serious: Yes (Other)
  Sender: FDA-Public Use
  Company Number: JP-GLAXOSMITHKLINE-B0760898A

PATIENT
  Sex: Male

DRUGS (6)
  1. SEROQUEL [Concomitant]
     Indication: BIPOLAR II DISORDER
     Dosage: 25MG PER DAY
     Route: 048
     Dates: start: 20111015, end: 20111101
  2. LAMICTAL [Suspect]
     Dosage: 50MG PER DAY
     Route: 048
     Dates: start: 20111016, end: 20111030
  3. LAMICTAL [Suspect]
     Indication: BIPOLAR II DISORDER
     Dosage: 25MG PER DAY
     Route: 048
     Dates: start: 20110914, end: 20111015
  4. LITHIUM CARBONATE [Concomitant]
     Indication: BIPOLAR II DISORDER
     Dosage: 1000MG PER DAY
     Route: 048
     Dates: start: 20110812, end: 20111102
  5. SEROQUEL [Concomitant]
     Dosage: 50MG PER DAY
     Route: 048
     Dates: start: 20111102
  6. SEROQUEL [Concomitant]
     Dosage: 100MG PER DAY
     Route: 048
     Dates: start: 20111118

REACTIONS (11)
  - RASH GENERALISED [None]
  - GAMMA-GLUTAMYLTRANSFERASE INCREASED [None]
  - EOSINOPHIL PERCENTAGE INCREASED [None]
  - TONSILLITIS [None]
  - FLUSHING [None]
  - WHITE BLOOD CELL COUNT ABNORMAL [None]
  - LYMPHOCYTE PERCENTAGE DECREASED [None]
  - MONOCYTE PERCENTAGE INCREASED [None]
  - DRUG ERUPTION [None]
  - RUBELLA [None]
  - RASH PRURITIC [None]
